FAERS Safety Report 23590461 (Version 1)
Quarter: 2024Q1

REPORT INFORMATION
  Report Type: Spontaneous
  Country: KR (occurrence: KR)
  Receive Date: 20240304
  Receipt Date: 20240304
  Transmission Date: 20240410
  Serious: Yes (Other)
  Sender: FDA-Public Use
  Company Number: KR-OPELLA-2024OHG005885

PATIENT
  Age: 44 Year
  Sex: Male

DRUGS (8)
  1. CHILDRENS ALLEGRA HIVES [Suspect]
     Active Substance: FEXOFENADINE HYDROCHLORIDE
     Indication: Product used for unknown indication
     Dosage: 1 {DF}  /  1 D
     Dates: start: 20220929, end: 20221019
  2. CHILDRENS ALLEGRA HIVES [Suspect]
     Active Substance: FEXOFENADINE HYDROCHLORIDE
     Dosage: 1 {DF}  /  1 D
     Dates: start: 20221027, end: 20221030
  3. CHILDRENS ALLEGRA HIVES [Suspect]
     Active Substance: FEXOFENADINE HYDROCHLORIDE
     Dosage: 1 {DF}  /  0.5 D
     Dates: start: 20220818, end: 20220928
  4. METHYLPREDNISOLONE [Concomitant]
     Active Substance: METHYLPREDNISOLONE
     Indication: Product used for unknown indication
  5. AZATHIOPRINE [Concomitant]
     Active Substance: AZATHIOPRINE
     Indication: Product used for unknown indication
  6. PREGABALIN [Concomitant]
     Active Substance: PREGABALIN
     Indication: Product used for unknown indication
  7. ILAPRAZOLE [Concomitant]
     Active Substance: ILAPRAZOLE
     Indication: Product used for unknown indication
  8. REBAMIPIDE [Concomitant]
     Active Substance: REBAMIPIDE
     Indication: Product used for unknown indication

REACTIONS (1)
  - Drug-induced liver injury [Unknown]
